FAERS Safety Report 23323310 (Version 1)
Quarter: 2023Q4

REPORT INFORMATION
  Report Type: Other
  Country: US (occurrence: None)
  Receive Date: 20231220
  Receipt Date: 20231220
  Transmission Date: 20240109
  Serious: Yes (Hospitalization)
  Sender: FDA-Public Use
  Company Number: US-ROCHE-3328347

PATIENT
  Age: 31 Year
  Sex: Male

DRUGS (13)
  1. RITUXIMAB [Suspect]
     Active Substance: RITUXIMAB
     Indication: Myasthenia gravis
     Route: 041
  2. RITUXIMAB [Suspect]
     Active Substance: RITUXIMAB
     Indication: Thymoma
  3. ECULIZUMAB [Concomitant]
     Active Substance: ECULIZUMAB
  4. REMDESIVIR [Concomitant]
     Active Substance: REMDESIVIR
  5. DEXAMETHASONE [Concomitant]
     Active Substance: DEXAMETHASONE
  6. PROPRANOLOL [Concomitant]
     Active Substance: PROPRANOLOL HYDROCHLORIDE
  7. CLONIDINE [Concomitant]
     Active Substance: CLONIDINE
  8. BROMOCRIPTINE [Concomitant]
     Active Substance: BROMOCRIPTINE
  9. MORPHINE [Concomitant]
     Active Substance: MORPHINE
  10. MIDAZOLAM [Concomitant]
     Active Substance: MIDAZOLAM
  11. MYCOPHENOLIC ACID [Concomitant]
     Active Substance: MYCOPHENOLIC ACID
  12. PREDNISONE [Concomitant]
     Active Substance: PREDNISONE
  13. PYRIDOSTIGMINE [Concomitant]
     Active Substance: PYRIDOSTIGMINE

REACTIONS (1)
  - Pneumonia [Recovered/Resolved]
